FAERS Safety Report 9410345 (Version 3)
Quarter: 2013Q3

REPORT INFORMATION
  Report Type: Report from Study
  Country: CA (occurrence: CA)
  Receive Date: 20130719
  Receipt Date: 20130916
  Transmission Date: 20140515
  Serious: Yes (Other)
  Sender: FDA-Public Use
  Company Number: CA-ROCHE-1249049

PATIENT
  Sex: Female
  Weight: 78.9 kg

DRUGS (13)
  1. ACTEMRA [Suspect]
     Indication: RHEUMATOID ARTHRITIS
     Route: 042
     Dates: start: 20120220, end: 20120320
  2. RITUXAN [Suspect]
     Indication: RHEUMATOID ARTHRITIS
     Dosage: DAY 1 AND 15, RECENT DOSE OF RITUXIMAB RECEIVED ON 28-DEC-2012
     Route: 042
     Dates: start: 20120524, end: 20121228
  3. NORVASC [Concomitant]
  4. PREDNISONE [Concomitant]
     Route: 065
  5. PREDNISONE [Concomitant]
     Route: 065
  6. PROMETRIUM [Concomitant]
  7. STEMETIL [Concomitant]
  8. RIVOTRIL [Concomitant]
  9. DIPHENHYDRAMINE HCL [Concomitant]
     Indication: PREMEDICATION
     Route: 048
     Dates: start: 20120524
  10. ACETAMINOPHEN [Concomitant]
     Indication: PREMEDICATION
     Route: 048
     Dates: start: 20120524
  11. METHYLPREDNISOLONE [Concomitant]
     Indication: PREMEDICATION
     Route: 042
     Dates: start: 20120524
  12. METHOTREXATE [Concomitant]
  13. PANTODAC [Concomitant]

REACTIONS (6)
  - Clostridium difficile infection [Not Recovered/Not Resolved]
  - Hypothyroidism [Not Recovered/Not Resolved]
  - Colitis [Unknown]
  - Arthralgia [Not Recovered/Not Resolved]
  - Drug ineffective [Unknown]
  - Drug hypersensitivity [Unknown]
